FAERS Safety Report 5854857-8 (Version None)
Quarter: 2008Q3

REPORT INFORMATION
  Report Type: 
  Country: None (occurrence: None)
  Receive Date: 20080822
  Receipt Date: 20080808
  Transmission Date: 20090109
  Serious: Yes (Death, Hospitalization)
  Sender: FDA-Public Use
  Company Number: JP-GENENTECH-266495

PATIENT
  Sex: Female
  Weight: 47.8 kg

DRUGS (12)
  1. BEVACIZUMAB [Suspect]
     Indication: COLON CANCER METASTATIC
     Dosage: 5 MG/KG, QD
     Dates: start: 20070802
  2. OXALIPLATIN [Suspect]
     Indication: COLON CANCER
     Dosage: 57.1 MG/M2, QD
     Route: 041
     Dates: start: 20070802
  3. FLUOROURACIL [Suspect]
     Indication: COLON CANCER METASTATIC
     Dosage: 214 MG/M2, QD
     Dates: start: 20070802
  4. ISOVORIN [Suspect]
     Indication: COLON CANCER METASTATIC
     Dosage: 143 MG/M2, QD
     Route: 041
     Dates: start: 20070802
  5. AMLODIPINE [Concomitant]
     Indication: DRUG USE FOR UNKNOWN INDICATION
  6. KYTRIL [Concomitant]
     Indication: DRUG USE FOR UNKNOWN INDICATION
     Dosage: UNK
     Dates: start: 20070802
  7. DECADRON SRC [Concomitant]
     Indication: DRUG USE FOR UNKNOWN INDICATION
     Dosage: UNK
     Dates: start: 20070802
  8. NOVAMIN [Concomitant]
     Indication: DRUG USE FOR UNKNOWN INDICATION
     Dosage: UNK
     Dates: start: 20071031
  9. MAGNESIUM OXIDE [Concomitant]
     Indication: DRUG USE FOR UNKNOWN INDICATION
     Dosage: UNK
     Dates: start: 20071031
  10. FAMOTIDINE [Suspect]
     Indication: DRUG USE FOR UNKNOWN INDICATION
     Dosage: UNK
     Dates: start: 20071031
  11. MUCOSTA [Concomitant]
     Indication: DRUG USE FOR UNKNOWN INDICATION
     Dosage: UNK
     Dates: start: 20071031
  12. GASTROM [Concomitant]
     Indication: DRUG USE FOR UNKNOWN INDICATION
     Dosage: UNK
     Dates: start: 20071031

REACTIONS (3)
  - ANAEMIA [None]
  - FATIGUE [None]
  - WHITE BLOOD CELL COUNT DECREASED [None]
